FAERS Safety Report 15862042 (Version 1)
Quarter: 2019Q1

REPORT INFORMATION
  Report Type: Spontaneous
  Country: FR (occurrence: FR)
  Receive Date: 20190124
  Receipt Date: 20190124
  Transmission Date: 20190417
  Serious: Yes (Hospitalization)
  Sender: FDA-Public Use
  Company Number: PHHY2019FR012756

PATIENT
  Age: 69 Year
  Sex: Male
  Weight: 74.6 kg

DRUGS (6)
  1. DIAZEPAM. [Interacting]
     Active Substance: DIAZEPAM
     Indication: BIPOLAR DISORDER
     Dosage: 10 MG, QD
     Route: 048
     Dates: end: 20181023
  2. MIRTAZAPINE. [Interacting]
     Active Substance: MIRTAZAPINE
     Indication: BIPOLAR DISORDER
     Dosage: 30 MG, QD
     Route: 048
     Dates: end: 20181025
  3. PARACETAMOL [Concomitant]
     Active Substance: ACETAMINOPHEN
     Indication: PAIN
     Dosage: UNK
     Route: 048
  4. HYDROXYZINE HYDROCHLORIDE. [Suspect]
     Active Substance: HYDROXYZINE HYDROCHLORIDE
     Indication: INSOMNIA
     Dosage: 12.5 MG, UNK
     Route: 048
  5. LITHIUM. [Interacting]
     Active Substance: LITHIUM
     Indication: BIPOLAR DISORDER
     Dosage: 800 MG, QD
     Route: 048
     Dates: end: 20181025
  6. TRAMADOL. [Interacting]
     Active Substance: TRAMADOL
     Indication: PAIN
     Dosage: UNK
     Route: 048

REACTIONS (2)
  - Potentiating drug interaction [Recovered/Resolved]
  - Confusional state [Recovered/Resolved]

NARRATIVE: CASE EVENT DATE: 20181023
